FAERS Safety Report 10010927 (Version 2)
Quarter: 2014Q1

REPORT INFORMATION
  Report Type: Spontaneous
  Country: JP (occurrence: JP)
  Receive Date: 20140314
  Receipt Date: 20140317
  Transmission Date: 20141002
  Serious: Yes (Hospitalization)
  Sender: FDA-Public Use
  Company Number: JP-JNJFOC-20140306170

PATIENT
  Age: 55 Year
  Sex: Male

DRUGS (2)
  1. FINIBAX [Suspect]
     Indication: PNEUMONIA
     Route: 041
     Dates: start: 20140207, end: 20140211
  2. GRACEVIT [Suspect]
     Indication: PNEUMONIA
     Route: 048
     Dates: start: 20140203, end: 20140206

REACTIONS (2)
  - Pneumonitis [Not Recovered/Not Resolved]
  - Nausea [Recovered/Resolved]
